FAERS Safety Report 25393069 (Version 2)
Quarter: 2025Q3

REPORT INFORMATION
  Report Type: Spontaneous
  Country: CH (occurrence: CH)
  Receive Date: 20250604
  Receipt Date: 20250803
  Transmission Date: 20251020
  Serious: Yes (Life-Threatening, Hospitalization, Other)
  Sender: ALEXION PHARMACEUTICALS
  Company Number: None

PATIENT
  Age: 60 Year
  Sex: Female
  Weight: 64.1 kg

DRUGS (11)
  1. TRUQAP [Suspect]
     Active Substance: CAPIVASERTIB
     Dates: start: 20250428, end: 20250507
  2. LOPERAMIDE HYDROCHLORIDE [Suspect]
     Active Substance: LOPERAMIDE HYDROCHLORIDE
  3. PEPPERMINT OIL [Suspect]
     Active Substance: PEPPERMINT OIL
  4. FASLODEX [Concomitant]
     Active Substance: FULVESTRANT
     Dosage: 500 MILLIGRAM, Q4W
     Dates: start: 20190613, end: 20230711
  5. FASLODEX [Concomitant]
     Active Substance: FULVESTRANT
  6. CALCIUM\CHOLECALCIFEROL [Concomitant]
     Active Substance: CALCIUM\CHOLECALCIFEROL
     Dosage: 1 DOSAGE FORM CONTAINS 1000MG CALCIUM AND 800 IU CHOLECALCIFEROL
     Dates: start: 20241010
  7. GINKGO [Concomitant]
     Active Substance: GINKGO
     Dosage: 120 MILLIGRAM, Q12H
     Dates: start: 20241010
  8. Vitamin a blache [Concomitant]
     Dosage: UNK UNK, QD
     Dates: start: 20200707
  9. Baldriana tinkt. [Concomitant]
  10. CAFFEINE\MECLIZINE MONOHYDROCHLORIDE\PYRIDOXINE HYDROCHLORIDE [Concomitant]
     Active Substance: CAFFEINE\MECLIZINE MONOHYDROCHLORIDE\PYRIDOXINE HYDROCHLORIDE
  11. ACETAMINOPHEN [Concomitant]
     Active Substance: ACETAMINOPHEN

REACTIONS (3)
  - Systemic inflammatory response syndrome [Recovering/Resolving]
  - Mucosal inflammation [Recovering/Resolving]
  - Rash [Recovering/Resolving]

NARRATIVE: CASE EVENT DATE: 20250507
